FAERS Safety Report 8911170 (Version 1)
Quarter: 2012Q4

REPORT INFORMATION
  Report Type: 
  Country: US (occurrence: US)
  Receive Date: 20121115
  Receipt Date: 20121115
  Transmission Date: 20130627
  Serious: Yes (Other)
  Sender: FDA-Public Use
  Company Number: US-AMGEN-USASP2012058255

PATIENT

DRUGS (1)
  1. VECTIBIX [Suspect]
     Indication: COLORECTAL CANCER METASTATIC

REACTIONS (1)
  - Hypomagnesaemia [Not Recovered/Not Resolved]
